FAERS Safety Report 9724326 (Version 1)
Quarter: 2013Q4

REPORT INFORMATION
  Report Type: Spontaneous
  Country: DK (occurrence: DK)
  Receive Date: 20131202
  Receipt Date: 20131202
  Transmission Date: 20140711
  Serious: Yes (Death)
  Sender: FDA-Public Use
  Company Number: DK-OTSUKA-EU-2013-10303

PATIENT
  Sex: 0

DRUGS (1)
  1. SAMSCA [Suspect]
     Dosage: UNK UNK, UNKNOWN

REACTIONS (1)
  - Death [Fatal]
